FAERS Safety Report 9401988 (Version 1)
Quarter: 2013Q3

REPORT INFORMATION
  Report Type: Spontaneous
  Country: US (occurrence: US)
  Receive Date: 20130716
  Receipt Date: 20130716
  Transmission Date: 20140515
  Serious: No
  Sender: FDA-Public Use
  Company Number: US-PFIZER INC-2013206502

PATIENT
  Age: 69 Year
  Sex: Female
  Weight: 68.03 kg

DRUGS (9)
  1. GABAPENTIN [Suspect]
     Indication: DIABETIC NEUROPATHY
     Dosage: UNK
     Dates: start: 2011
  2. GABAPENTIN [Suspect]
     Dosage: TOTAL DOSE OF 400 MG IN A DAY/ONE TABLET TWO TIMES A DAY AND TWO TABLETS TOGETHER AT BED TIME
  3. GABAPENTIN [Suspect]
     Dosage: UNK
     Dates: end: 201306
  4. SIMVASTATIN [Concomitant]
     Indication: BLOOD CHOLESTEROL INCREASED
     Dosage: DAILY
  5. SIMVASTATIN [Concomitant]
     Indication: BLOOD TRIGLYCERIDES INCREASED
  6. ISOSORBIDE [Concomitant]
     Indication: ANGINA PECTORIS
     Dosage: UNK
  7. METOPROLOL [Concomitant]
     Indication: CHEST PAIN
     Dosage: UNK
  8. METOPROLOL [Concomitant]
     Indication: HYPERTENSION
  9. LISINOPRIL [Concomitant]
     Indication: HYPERTENSION
     Dosage: UNK

REACTIONS (2)
  - Drug ineffective [Unknown]
  - Hypoaesthesia [Recovering/Resolving]
